FAERS Safety Report 12237890 (Version 3)
Quarter: 2016Q2

REPORT INFORMATION
  Report Type: Spontaneous
  Country: US (occurrence: US)
  Receive Date: 20160405
  Receipt Date: 20160428
  Transmission Date: 20160815
  Serious: Yes (Hospitalization, Other)
  Sender: FDA-Public Use
  Company Number: US-PFIZER INC-2016175656

PATIENT
  Age: 62 Year
  Sex: Female

DRUGS (3)
  1. FASLODEX [Concomitant]
     Active Substance: FULVESTRANT
     Indication: BREAST CANCER
     Dosage: UNK
  2. MAGNESIUM [Concomitant]
     Active Substance: MAGNESIUM
  3. IBRANCE [Suspect]
     Active Substance: PALBOCICLIB
     Indication: BREAST CANCER
     Dosage: 100 MG, CYCLIC (21 DAYS THEN ONE WEEK OFF TAKE WITHIN 30 MINUTES OF MEAL)
     Route: 048

REACTIONS (4)
  - Ileus [Recovered/Resolved]
  - Diarrhoea [Unknown]
  - Dysuria [Unknown]
  - Sepsis [Unknown]
